FAERS Safety Report 5187021-9 (Version None)
Quarter: 2006Q4

REPORT INFORMATION
  Report Type: 
  Country: None (occurrence: None)
  Receive Date: 20061220
  Receipt Date: 20061026
  Transmission Date: 20070319
  Serious: No
  Sender: FDA-Public Use
  Company Number: US-AMGEN-KDL198271

PATIENT
  Sex: Female

DRUGS (1)
  1. ENBREL [Suspect]
     Indication: RHEUMATOID ARTHRITIS
     Route: 058
     Dates: start: 20060926

REACTIONS (5)
  - CHILLS [None]
  - FEELING COLD [None]
  - FEELING HOT [None]
  - FLUSHING [None]
  - RHINORRHOEA [None]
